FAERS Safety Report 8020519-4 (Version None)
Quarter: 2012Q1

REPORT INFORMATION
  Report Type: 
  Country: None (occurrence: None)
  Receive Date: 20120103
  Receipt Date: 20120102
  Transmission Date: 20120608
  Serious: Yes (Hospitalization)
  Sender: FDA-Public Use
  Company Number: DE-ROCHE-1007651

PATIENT
  Age: 59 Year
  Sex: Female
  Weight: 66 kg

DRUGS (4)
  1. TILIDINE [Concomitant]
  2. MABTHERA [Suspect]
     Route: 042
     Dates: start: 20100511
  3. PREDNISOLONE [Concomitant]
  4. MABTHERA [Suspect]
     Indication: RHEUMATOID ARTHRITIS
     Route: 042
     Dates: start: 20100427

REACTIONS (4)
  - ELBOW OPERATION [None]
  - SHOULDER OPERATION [None]
  - NAUSEA [None]
  - HOSPITALISATION [None]
